FAERS Safety Report 15093607 (Version 1)
Quarter: 2018Q2

REPORT INFORMATION
  Report Type: Spontaneous
  Country: RO (occurrence: RO)
  Receive Date: 20180629
  Receipt Date: 20180629
  Transmission Date: 20180711
  Serious: Yes (Hospitalization, Other)
  Sender: FDA-Public Use
  Company Number: RO-MYLANLABS-2018M1047689

PATIENT
  Age: 46 Year
  Sex: Male

DRUGS (4)
  1. ARIPIPRAZOLE. [Suspect]
     Active Substance: ARIPIPRAZOLE
     Indication: AFFECTIVE DISORDER
  2. OLANZAPINE. [Suspect]
     Active Substance: OLANZAPINE
     Indication: SCHIZOPHRENIA
     Dosage: UNK
     Dates: end: 2014
  3. VALPROIC ACID. [Suspect]
     Active Substance: VALPROIC ACID
     Indication: SCHIZOPHRENIA
     Dosage: UNK
     Dates: end: 2014
  4. ARIPIPRAZOLE. [Suspect]
     Active Substance: ARIPIPRAZOLE
     Indication: SCHIZOPHRENIA
     Dosage: UNK
     Dates: start: 2014, end: 2016

REACTIONS (14)
  - Delusion [Unknown]
  - Language disorder [Unknown]
  - Drug intolerance [Unknown]
  - Psychomotor hyperactivity [Unknown]
  - Abnormal behaviour [Unknown]
  - Hepatic steatosis [Unknown]
  - Condition aggravated [Unknown]
  - Parkinsonism [Unknown]
  - Psychotic disorder [Unknown]
  - Inappropriate schedule of drug administration [Unknown]
  - Weight increased [Unknown]
  - Drug ineffective [Unknown]
  - Dyslipidaemia [Unknown]
  - Impulsive behaviour [Unknown]

NARRATIVE: CASE EVENT DATE: 2014
